FAERS Safety Report 11424400 (Version 2)
Quarter: 2015Q3

REPORT INFORMATION
  Report Type: Spontaneous
  Country: US (occurrence: US)
  Receive Date: 20150827
  Receipt Date: 20150827
  Transmission Date: 20151125
  Serious: No
  Sender: FDA-Public Use
  Company Number: US-SANOFI-AVENTIS-2010SA058349

PATIENT
  Age: 88 Year
  Sex: Female

DRUGS (3)
  1. VITAMIN D3 [Concomitant]
     Active Substance: CHOLECALCIFEROL
  2. MULTAQ [Suspect]
     Active Substance: DRONEDARONE
     Indication: ATRIAL FIBRILLATION
     Route: 065
     Dates: start: 2010
  3. SUCRALFATE. [Concomitant]
     Active Substance: SUCRALFATE

REACTIONS (7)
  - Dyspepsia [Unknown]
  - Insomnia [Unknown]
  - Dysphagia [Not Recovered/Not Resolved]
  - Hyperphagia [Unknown]
  - Abdominal discomfort [Unknown]
  - Hunger [Unknown]
  - Chest discomfort [Unknown]

NARRATIVE: CASE EVENT DATE: 201411
